FAERS Safety Report 7053844-4 (Version None)
Quarter: 2010Q4

REPORT INFORMATION
  Report Type: 
  Country: None (occurrence: None)
  Receive Date: 20101020
  Receipt Date: 20101014
  Transmission Date: 20110411
  Serious: Yes (Death, Other)
  Sender: FDA-Public Use
  Company Number: PHHY2010NZ07114

PATIENT
  Sex: Female

DRUGS (8)
  1. CLOZARIL [Suspect]
     Indication: SCHIZOPHRENIA
     Dosage: 450 MG AT NIGHT
     Route: 048
     Dates: start: 20061117
  2. CLOZARIL [Interacting]
     Dosage: UNK
     Route: 048
     Dates: start: 20070126
  3. CLOZARIL [Interacting]
     Dosage: UNK
     Route: 048
     Dates: start: 20090121
  4. CLOZARIL [Interacting]
     Dosage: UNK
     Route: 048
     Dates: start: 20090501, end: 20091201
  5. LAXATIVES [Concomitant]
  6. TRIMETHOPRIM [Concomitant]
  7. OMEPRAZOLE [Concomitant]
     Dosage: 20 MG
     Dates: start: 20070412
  8. OMEPRAZOLE [Concomitant]
     Dosage: 40 MG
     Dates: start: 20091028

REACTIONS (31)
  - ACUTE ABDOMEN [None]
  - ALANINE AMINOTRANSFERASE INCREASED [None]
  - ANTIPSYCHOTIC DRUG LEVEL INCREASED [None]
  - ASPARTATE AMINOTRANSFERASE INCREASED [None]
  - ASPIRATION [None]
  - ATELECTASIS [None]
  - BLOOD ALKALINE PHOSPHATASE INCREASED [None]
  - BRONCHIAL OBSTRUCTION [None]
  - CARDIO-RESPIRATORY ARREST [None]
  - CHOLECYSTITIS ACUTE [None]
  - CHOLELITHIASIS [None]
  - CIRCULATORY COLLAPSE [None]
  - CONVULSION [None]
  - DRUG INTERACTION [None]
  - DYSPHONIA [None]
  - DYSPNOEA [None]
  - EROSIVE OESOPHAGITIS [None]
  - GAMMA-GLUTAMYLTRANSFERASE INCREASED [None]
  - GASTROOESOPHAGEAL REFLUX DISEASE [None]
  - HALLUCINATION, AUDITORY [None]
  - INTENTIONAL OVERDOSE [None]
  - MALAISE [None]
  - NEUTROPHIL COUNT INCREASED [None]
  - PERSECUTORY DELUSION [None]
  - PULMONARY CONGESTION [None]
  - SALIVARY HYPERSECRETION [None]
  - SCHIZOPHRENIA [None]
  - SEDATION [None]
  - THYROID NEOPLASM [None]
  - TREATMENT NONCOMPLIANCE [None]
  - WHITE BLOOD CELL COUNT INCREASED [None]
